FAERS Safety Report 10359734 (Version 4)
Quarter: 2014Q3

REPORT INFORMATION
  Report Type: Spontaneous
  Country: DE (occurrence: DE)
  Receive Date: 20140804
  Receipt Date: 20140812
  Transmission Date: 20150326
  Serious: Yes (Other)
  Sender: FDA-Public Use
  Company Number: DE-PFIZER INC-2014194926

PATIENT
  Age: 50 Year
  Sex: Male
  Weight: 85 kg

DRUGS (3)
  1. LYRICA [Suspect]
     Active Substance: PREGABALIN
     Dosage: 150-300 MG, DAILY
  2. LYRICA [Suspect]
     Active Substance: PREGABALIN
     Dosage: 225 MG, DAILY
  3. CITALOPRAM [Suspect]
     Active Substance: CITALOPRAM HYDROBROMIDE
     Dosage: UNK

REACTIONS (1)
  - Liver function test abnormal [Recovering/Resolving]
